FAERS Safety Report 7465824-5 (Version None)
Quarter: 2011Q2

REPORT INFORMATION
  Report Type: 
  Country: None (occurrence: None)
  Receive Date: 20110509
  Receipt Date: 20100420
  Transmission Date: 20111010
  Serious: No
  Sender: FDA-Public Use
  Company Number: US-ALEXION-A201000465

PATIENT
  Sex: Female

DRUGS (5)
  1. MULTI-VITAMINS [Concomitant]
     Dosage: UNK
     Route: 048
  2. SOLIRIS [Suspect]
     Dosage: 900 MG, Q2W
     Route: 042
     Dates: start: 20090501
  3. FOLIC ACID [Concomitant]
     Dosage: UNK
     Route: 048
  4. ASPIRIN [Concomitant]
     Dosage: UNK
     Route: 048
  5. SOLIRIS [Suspect]
     Indication: PAROXYSMAL NOCTURNAL HAEMOGLOBINURIA
     Dosage: 600 MG, QW
     Route: 042
     Dates: start: 20090418, end: 20090501

REACTIONS (2)
  - ENERGY INCREASED [None]
  - VITAMIN B12 DEFICIENCY [None]
